FAERS Safety Report 24439289 (Version 1)
Quarter: 2024Q4

REPORT INFORMATION
  Report Type: Report from Study
  Country: IN (occurrence: IN)
  Receive Date: 20241015
  Receipt Date: 20241015
  Transmission Date: 20250115
  Serious: Yes (Hospitalization, Other)
  Sender: CIPLA
  Company Number: IN-CIPLA LTD.-2024IN11303

PATIENT

DRUGS (2)
  1. AMLODIPINE BESYLATE\TELMISARTAN [Suspect]
     Active Substance: AMLODIPINE BESYLATE\TELMISARTAN
     Indication: Product used for unknown indication
     Dosage: 1 DOSE 1 FREQUENCY (UNITS UNSPECIFIED)
     Route: 048
  2. METOPROLOL SUCCINATE [Suspect]
     Active Substance: METOPROLOL SUCCINATE
     Indication: Product used for unknown indication
     Dosage: STRENGTH: 25, 1 DOSE 1 FREQUENCY (UNITS UNSPECIFIED)
     Route: 048

REACTIONS (1)
  - Lens disorder [Not Recovered/Not Resolved]

NARRATIVE: CASE EVENT DATE: 20240901
